FAERS Safety Report 8277060-3 (Version None)
Quarter: 2012Q2

REPORT INFORMATION
  Report Type: 
  Country: None (occurrence: None)
  Receive Date: 20120412
  Receipt Date: 20120405
  Transmission Date: 20120825
  Serious: No
  Sender: FDA-Public Use
  Company Number: US-BAYER-2012-035178

PATIENT

DRUGS (1)
  1. ALEVE (CAPLET) [Suspect]

REACTIONS (1)
  - PAIN [None]
